FAERS Safety Report 9097953 (Version 1)
Quarter: 2013Q1

REPORT INFORMATION
  Report Type: Spontaneous
  Country: US (occurrence: US)
  Receive Date: 20130212
  Receipt Date: 20130212
  Transmission Date: 20140127
  Serious: No
  Sender: FDA-Public Use
  Company Number: US-PFIZER INC-2013055503

PATIENT
  Age: 68 Year
  Sex: Female
  Weight: 49.89 kg

DRUGS (4)
  1. CELEBREX [Suspect]
     Indication: OSTEOARTHRITIS
     Dosage: 200 MG, 1X/DAY
     Route: 048
     Dates: start: 20130208
  2. FISH OIL [Concomitant]
     Dosage: UNK
  3. VITAMIN D [Concomitant]
     Dosage: UNK
  4. CALCIUM [Concomitant]
     Dosage: UNK

REACTIONS (4)
  - Rash [Recovered/Resolved]
  - Pruritus [Recovered/Resolved]
  - Hypersensitivity [Recovered/Resolved]
  - Drug intolerance [Unknown]
